FAERS Safety Report 8220472-4 (Version None)
Quarter: 2012Q1

REPORT INFORMATION
  Report Type: 
  Country: None (occurrence: None)
  Receive Date: 20120320
  Receipt Date: 20120314
  Transmission Date: 20120608
  Serious: Yes (Life-Threatening, Hospitalization)
  Sender: FDA-Public Use
  Company Number: DE-AMGEN-DEUCT2012016726

PATIENT
  Age: 60 Year
  Sex: Male

DRUGS (12)
  1. PANITUMUMAB [Suspect]
     Indication: NON-SMALL CELL LUNG CANCER
     Dosage: 9 MG/KG, UNK
     Route: 042
     Dates: start: 20111220, end: 20120131
  2. DURAGESIC-100 [Concomitant]
  3. FRAGMIN [Concomitant]
  4. PEMETREXED [Concomitant]
     Indication: NON-SMALL CELL LUNG CANCER
     Dosage: 500 MG/M2, UNK
     Route: 042
     Dates: start: 20111220, end: 20120131
  5. AMLODIPINE [Concomitant]
  6. CISPLATIN [Concomitant]
     Indication: NON-SMALL CELL LUNG CANCER
     Dosage: 75 MG/M2, UNK
     Route: 042
     Dates: start: 20111220, end: 20120131
  7. ASPIRIN [Concomitant]
  8. RAMIPRIL [Concomitant]
  9. SIMVASTATIN [Concomitant]
  10. IBUPROFEN [Concomitant]
  11. PANTOPRAZOLE [Concomitant]
  12. MORPHINE SULFATE [Concomitant]
     Dosage: UNK UNK, PRN

REACTIONS (5)
  - TACHYCARDIA [None]
  - STAPHYLOCOCCAL INFECTION [None]
  - HYPOTENSION [None]
  - DIVERTICULITIS MECKEL'S [None]
  - INFECTIOUS PERITONITIS [None]
